FAERS Safety Report 7998015 (Version 2)
Quarter: 2015Q4

REPORT INFORMATION
  Report Type: Report from Study
  Country: US (occurrence: US)
  Receive Date: 20110620
  Receipt Date: 20151127
  Transmission Date: 20160305
  Serious: Yes (Hospitalization, Other)
  Sender: FDA-Public Use
  Company Number: US-ROCHE-782647

PATIENT
  Age: 82 Year
  Sex: Female

DRUGS (11)
  1. BEVACIZUMAB [Suspect]
     Active Substance: BEVACIZUMAB
     Indication: MALIGNANT PERITONEAL NEOPLASM
  2. CARBOPLATIN. [Suspect]
     Active Substance: CARBOPLATIN
     Indication: MALIGNANT PERITONEAL NEOPLASM
     Dosage: AUC 6 IV ON DAY 1
     Route: 042
     Dates: start: 20100422
  3. CARBOPLATIN. [Suspect]
     Active Substance: CARBOPLATIN
     Indication: FALLOPIAN TUBE CANCER
  4. CARBOPLATIN. [Suspect]
     Active Substance: CARBOPLATIN
     Indication: OVARIAN CANCER
  5. LISINOPRIL. [Suspect]
     Active Substance: LISINOPRIL
     Route: 065
  6. PACLITAXEL. [Suspect]
     Active Substance: PACLITAXEL
     Indication: OVARIAN CANCER
     Dosage: OVER 1 HR ON DAYS 1, 8 + 15.
     Route: 042
     Dates: start: 20100422
  7. LISINOPRIL. [Suspect]
     Active Substance: LISINOPRIL
     Indication: HYPERTENSION
     Route: 065
  8. PACLITAXEL. [Suspect]
     Active Substance: PACLITAXEL
     Indication: FALLOPIAN TUBE CANCER
  9. BEVACIZUMAB [Suspect]
     Active Substance: BEVACIZUMAB
     Indication: FALLOPIAN TUBE CANCER
     Dosage: OVER 30-90 MIN ON DAY 1, BEGINNING WITH CYCLE 2.
     Route: 042
  10. BEVACIZUMAB [Suspect]
     Active Substance: BEVACIZUMAB
     Indication: OVARIAN CANCER
  11. PACLITAXEL. [Suspect]
     Active Substance: PACLITAXEL
     Indication: MALIGNANT PERITONEAL NEOPLASM

REACTIONS (12)
  - Psychotic disorder [Unknown]
  - Confusional state [Unknown]
  - Speech disorder [Unknown]
  - Depressed level of consciousness [Unknown]
  - Cerebral ischaemia [Unknown]
  - Blood sodium decreased [Unknown]
  - Ataxia [Unknown]
  - Agitation [Unknown]
  - Aphasia [Unknown]
  - Seizure [Unknown]
  - Leukoencephalopathy [Unknown]
  - Encephalopathy [Unknown]

NARRATIVE: CASE EVENT DATE: 20110105
